FAERS Safety Report 16591492 (Version 1)
Quarter: 2019Q3

REPORT INFORMATION
  Report Type: Spontaneous
  Country: US (occurrence: US)
  Receive Date: 20190605
  Receipt Date: 20190605
  Transmission Date: 20191004
  Serious: Yes (Death, Hospitalization)
  Sender: FDA-Public Use
  Company Number: None

PATIENT
  Age: 54 Year
  Sex: Female
  Weight: 99.79 kg

DRUGS (14)
  1. ATORVASTATIN [Concomitant]
     Active Substance: ATORVASTATIN
  2. ELIQUIS [Concomitant]
     Active Substance: APIXABAN
  3. OXICODONE [Concomitant]
  4. VITAMIN W/IRON [Concomitant]
  5. NORVASC [Concomitant]
     Active Substance: AMLODIPINE BESYLATE
  6. GABAPENTIN. [Concomitant]
     Active Substance: GABAPENTIN
  7. SENNOSIDES. [Concomitant]
     Active Substance: SENNOSIDES
  8. TYLENOL [Concomitant]
     Active Substance: ACETAMINOPHEN
  9. TRIAMTERENE (LIPITOR) [Concomitant]
  10. CELEBREX [Concomitant]
     Active Substance: CELECOXIB
  11. MEETROPROLOL XL [Concomitant]
  12. MUPIRICIN [Concomitant]
  13. DOCUSATE SODIUM. [Concomitant]
     Active Substance: DOCUSATE SODIUM
  14. ELIQUIS [Suspect]
     Active Substance: APIXABAN
     Indication: THROMBOSIS PROPHYLAXIS
     Dosage: ?          QUANTITY:2.5 MG MILLIGRAM(S);?
     Route: 048
     Dates: start: 20190417, end: 20190428

REACTIONS (3)
  - Intracranial venous sinus thrombosis [None]
  - Haemorrhagic stroke [None]
  - Cerebral haemorrhage [None]

NARRATIVE: CASE EVENT DATE: 20190429
